FAERS Safety Report 13715819 (Version 4)
Quarter: 2017Q4

REPORT INFORMATION
  Report Type: Spontaneous
  Country: US (occurrence: US)
  Receive Date: 20170705
  Receipt Date: 20171013
  Transmission Date: 20180320
  Serious: No
  Sender: FDA-Public Use
  Company Number: US-TEVA-783749USA

PATIENT
  Sex: Male

DRUGS (3)
  1. PROVIGIL [Suspect]
     Active Substance: MODAFINIL
  2. REPATHA [Interacting]
     Active Substance: EVOLOCUMAB
     Indication: CARDIAC DISORDER
     Route: 065
  3. HCG [Interacting]
     Active Substance: GONADOTROPHIN, CHORIONIC
     Route: 065

REACTIONS (2)
  - Drug interaction [Unknown]
  - Drug effect decreased [Unknown]
